FAERS Safety Report 16383590 (Version 1)
Quarter: 2019Q2

REPORT INFORMATION
  Report Type: Spontaneous
  Country: US (occurrence: US)
  Receive Date: 20190426
  Receipt Date: 20190426
  Transmission Date: 20190711
  Serious: No
  Sender: FDA-Public Use
  Company Number: None

PATIENT
  Age: 55 Year
  Sex: Female

DRUGS (1)
  1. TALTZ [Suspect]
     Active Substance: IXEKIZUMAB
     Indication: PSORIASIS
     Dosage: STARTER DOSE
     Route: 058
     Dates: start: 20190401

REACTIONS (3)
  - Urticaria [None]
  - Pruritus generalised [None]
  - Peripheral swelling [None]

NARRATIVE: CASE EVENT DATE: 20190401
